FAERS Safety Report 4977601-5 (Version None)
Quarter: 2006Q2

REPORT INFORMATION
  Report Type: 
  Country: None (occurrence: None)
  Receive Date: 20060414
  Receipt Date: 20060404
  Transmission Date: 20061013
  Serious: Yes (Hospitalization, Other)
  Sender: FDA-Public Use
  Company Number: 200610197BFR

PATIENT
  Age: 74 Year
  Sex: Female
  Weight: 48 kg

DRUGS (1)
  1. ACARBOSE [Suspect]
     Indication: DIABETES MELLITUS
     Dosage: 450 MG, TOTAL DAILY, ORAL
     Route: 048
     Dates: end: 20060207

REACTIONS (4)
  - AGRANULOCYTOSIS [None]
  - HEPATITIS [None]
  - NEUTROPENIA [None]
  - NORMOCHROMIC NORMOCYTIC ANAEMIA [None]
